FAERS Safety Report 16255362 (Version 1)
Quarter: 2019Q2

REPORT INFORMATION
  Report Type: Spontaneous
  Country: US (occurrence: US)
  Receive Date: 20190429
  Receipt Date: 20190429
  Transmission Date: 20190711
  Serious: Yes (Other)
  Sender: FDA-Public Use
  Company Number: None

PATIENT
  Age: 12 Year
  Sex: Male
  Weight: 49.5 kg

DRUGS (3)
  1. FLOVENT 110 MCG INHALER [Concomitant]
     Dates: start: 20180820
  2. METHYLPHENIDATE ER [Suspect]
     Active Substance: METHYLPHENIDATE
     Indication: ATTENTION DEFICIT/HYPERACTIVITY DISORDER
     Route: 048
     Dates: start: 20190318, end: 20190415
  3. PROAIR 108 MCG INHALER [Concomitant]
     Dates: start: 20180820

REACTIONS (3)
  - Depression [None]
  - Suicidal ideation [None]
  - Therapeutic product effect incomplete [None]

NARRATIVE: CASE EVENT DATE: 20190325
